FAERS Safety Report 7394495-1 (Version None)
Quarter: 2011Q2

REPORT INFORMATION
  Report Type: 
  Country: None (occurrence: None)
  Receive Date: 20110405
  Receipt Date: 20110324
  Transmission Date: 20111010
  Serious: Yes (Other)
  Sender: FDA-Public Use
  Company Number: PHHY2011FR24443

PATIENT
  Age: 73 Year
  Sex: Female

DRUGS (3)
  1. LEXOMIL [Concomitant]
  2. LEPONEX [Suspect]
     Indication: PSYCHOTIC DISORDER
     Dosage: 37.5 MG, QD
     Route: 048
     Dates: end: 20110323
  3. TERALITHE [Concomitant]

REACTIONS (2)
  - MUSCLE CONTRACTIONS INVOLUNTARY [None]
  - TREMOR [None]
